FAERS Safety Report 9117876 (Version 2)
Quarter: 2013Q1

REPORT INFORMATION
  Report Type: Spontaneous
  Country: BH (occurrence: BH)
  Receive Date: 20130208
  Receipt Date: 20130313
  Transmission Date: 20140127
  Serious: Yes (Death)
  Sender: FDA-Public Use
  Company Number: PHHY2013BH011952

PATIENT
  Sex: 0

DRUGS (2)
  1. GILENYA [Suspect]
     Indication: MULTIPLE SCLEROSIS
     Dosage: UNK
     Dates: start: 20130117
  2. L-THYROXIN [Concomitant]
     Indication: HYPOTHYROIDISM

REACTIONS (2)
  - Circulatory collapse [Fatal]
  - Dyspnoea [Unknown]
